FAERS Safety Report 13456081 (Version 2)
Quarter: 2017Q2

REPORT INFORMATION
  Report Type: Spontaneous
  Country: IT (occurrence: IT)
  Receive Date: 20170419
  Receipt Date: 20170427
  Transmission Date: 20170830
  Serious: Yes (Other)
  Sender: FDA-Public Use
  Company Number: IT-IGSA-IG005343

PATIENT
  Age: 53 Year
  Sex: Male

DRUGS (2)
  1. FLEBOGAMMA DIF [Suspect]
     Active Substance: HUMAN IMMUNOGLOBULIN G
     Indication: SEPSIS
     Route: 042
     Dates: start: 20170405, end: 20170405
  2. IG VENA [Suspect]
     Active Substance: HUMAN IMMUNOGLOBULIN G
     Indication: SEPSIS
     Route: 042
     Dates: start: 20170405, end: 20170405

REACTIONS (1)
  - Tremor [Recovered/Resolved]

NARRATIVE: CASE EVENT DATE: 20170405
